FAERS Safety Report 16976154 (Version 3)
Quarter: 2019Q4

REPORT INFORMATION
  Report Type: Spontaneous
  Country: US (occurrence: US)
  Receive Date: 20191030
  Receipt Date: 20191204
  Transmission Date: 20200122
  Serious: No
  Sender: FDA-Public Use
  Company Number: US-JNJFOC-20191036197

PATIENT
  Age: 57 Year
  Sex: Female
  Weight: 120.31 kg

DRUGS (7)
  1. DURAGESIC [Suspect]
     Active Substance: FENTANYL
     Indication: BACK PAIN
     Dosage: OVER 10 YEARS AGO?DURAGESIC PATCH MATRIX 100.00 MICRO GRAM / HOUR
     Route: 062
  2. DURAGESIC [Suspect]
     Active Substance: FENTANYL
     Indication: ARTHRALGIA
     Dosage: ABOUT 6 MONTHS
     Route: 062
  3. DURAGESIC [Suspect]
     Active Substance: FENTANYL
     Route: 062
     Dates: start: 2018
  4. FENTANYL. [Suspect]
     Active Substance: FENTANYL
     Indication: ARTHRALGIA
  5. FENTANYL. [Suspect]
     Active Substance: FENTANYL
     Indication: BACK PAIN
     Route: 062
     Dates: end: 2018
  6. FENTANYL. [Suspect]
     Active Substance: FENTANYL
     Indication: BACK PAIN
     Dosage: GEL FORMULATION ABOUT 2 YEARS AGO
     Route: 062
     Dates: end: 2018
  7. FENTANYL. [Suspect]
     Active Substance: FENTANYL
     Indication: ARTHRALGIA

REACTIONS (11)
  - Application site pain [Recovered/Resolved]
  - Product dose omission [Unknown]
  - Application site reaction [Recovered/Resolved]
  - Application site erythema [Recovered/Resolved]
  - Seborrhoea [Unknown]
  - Wrong technique in product usage process [Unknown]
  - Inappropriate schedule of product administration [Unknown]
  - Product complaint [Unknown]
  - Back pain [Unknown]
  - Therapeutic product effect decreased [Unknown]
  - Weight decreased [Not Recovered/Not Resolved]

NARRATIVE: CASE EVENT DATE: 201910
